FAERS Safety Report 9456927 (Version 1)
Quarter: 2013Q3

REPORT INFORMATION
  Report Type: Spontaneous
  Country: AU (occurrence: AU)
  Receive Date: 20130813
  Receipt Date: 20130813
  Transmission Date: 20140515
  Serious: Yes (Hospitalization, Other)
  Sender: FDA-Public Use
  Company Number: AU-B.I. PHARMACEUTICALS,INC./RIDGEFIELD-2013-AU-00972AU

PATIENT
  Age: 82 Year
  Sex: Male

DRUGS (3)
  1. PRADAXA [Suspect]
     Dates: end: 20130802
  2. ANTIBIOTICS [Concomitant]
     Route: 042
     Dates: end: 20130729
  3. ANTIBIOTICS [Concomitant]
     Route: 048
     Dates: start: 20130729

REACTIONS (3)
  - Deep vein thrombosis [Unknown]
  - Limb injury [Unknown]
  - Cellulitis [Unknown]
